FAERS Safety Report 13496599 (Version 2)
Quarter: 2017Q2

REPORT INFORMATION
  Report Type: Spontaneous
  Country: US (occurrence: US)
  Receive Date: 20170428
  Receipt Date: 20170428
  Transmission Date: 20170830
  Serious: No
  Sender: FDA-Public Use
  Company Number: US-JAZZ-2017-US-003519

PATIENT
  Sex: Female

DRUGS (17)
  1. ASPIRIN 81 [Concomitant]
     Active Substance: ASPIRIN
  2. FLOVENT HFA [Concomitant]
     Active Substance: FLUTICASONE PROPIONATE
  3. MYRBETRIQ [Concomitant]
     Active Substance: MIRABEGRON
  4. VYVANSE [Concomitant]
     Active Substance: LISDEXAMFETAMINE DIMESYLATE
  5. AMOXICILLIN. [Concomitant]
     Active Substance: AMOXICILLIN
  6. SYNTHROID [Concomitant]
     Active Substance: LEVOTHYROXINE SODIUM
  7. ALEVE [Concomitant]
     Active Substance: NAPROXEN SODIUM
  8. XYREM [Suspect]
     Active Substance: SODIUM OXYBATE
     Indication: SOMNOLENCE
     Dosage: 3G, BID
     Route: 048
     Dates: start: 200509, end: 2016
  9. BENAZEPRIL HCL [Concomitant]
     Active Substance: BENAZEPRIL HYDROCHLORIDE
  10. CELEXA [Concomitant]
     Active Substance: CITALOPRAM HYDROBROMIDE
  11. CARAFATE [Concomitant]
     Active Substance: SUCRALFATE
  12. VITAMIN D                          /00107901/ [Concomitant]
     Active Substance: ERGOCALCIFEROL
  13. NEURONTIN [Concomitant]
     Active Substance: GABAPENTIN
  14. OXYBUTYNIN CHLORIDE. [Concomitant]
     Active Substance: OXYBUTYNIN CHLORIDE
  15. ALBUTEROL SULFATE. [Concomitant]
     Active Substance: ALBUTEROL SULFATE
  16. ZYRTEC [Concomitant]
     Active Substance: CETIRIZINE HYDROCHLORIDE
  17. SLOW-MAG [Concomitant]
     Active Substance: MAGNESIUM CHLORIDE

REACTIONS (1)
  - Off label use [Unknown]
